FAERS Safety Report 13364031 (Version 1)
Quarter: 2017Q1

REPORT INFORMATION
  Report Type: Spontaneous
  Country: FR (occurrence: FR)
  Receive Date: 20170323
  Receipt Date: 20170323
  Transmission Date: 20170429
  Serious: Yes (Hospitalization, Other)
  Sender: FDA-Public Use
  Company Number: FR-ASTRAZENECA-2017SE29088

PATIENT
  Age: 28563 Day
  Sex: Male

DRUGS (5)
  1. HYTACAND [Suspect]
     Active Substance: CANDESARTAN CILEXETIL\HYDROCHLOROTHIAZIDE
     Indication: HYPERTENSION
     Dosage: 16MG/12.5MG ONCE IN THE MORNING
     Route: 048
     Dates: end: 20170226
  2. ZANIDIP [Concomitant]
     Active Substance: LERCANIDIPINE HYDROCHLORIDE
     Indication: HYPERTENSION
     Route: 065
  3. CARDENSIEL [Concomitant]
     Active Substance: BISOPROLOL FUMARATE
     Indication: HYPERTENSION
     Route: 065
  4. MEDIATENSYL [Concomitant]
     Active Substance: URAPIDIL
     Indication: HYPERTENSION
     Route: 065
  5. KARDEGIC [Suspect]
     Active Substance: ASPIRIN LYSINE
     Indication: ISCHAEMIC STROKE
     Route: 042
     Dates: start: 20170226, end: 20170226

REACTIONS (6)
  - General physical health deterioration [Unknown]
  - Angioedema [Recovered/Resolved]
  - Lip oedema [Unknown]
  - Cerebrovascular accident [Unknown]
  - Face oedema [Unknown]
  - Laryngeal discomfort [Unknown]

NARRATIVE: CASE EVENT DATE: 20170226
